FAERS Safety Report 7925836 (Version 5)
Quarter: 2012Q4

REPORT INFORMATION
  Report Type: 
  Country: US (occurrence: US)
  Receive Date: 20110502
  Receipt Date: 20120829
  Transmission Date: 20130627
  Serious: Yes (Other)
  Sender: FDA-Public Use
  Company Number: US-ASTRAZENECA-2010SE43044

PATIENT
  Age: 47 Year
  Sex: Female
  Weight: 90.7 kg

DRUGS (9)
  1. NEXIUM [Suspect]
     Indication: GASTROOESOPHAGEAL REFLUX DISEASE
     Dosage: SOMETIMES 2 CAPSULES PER DAY
     Route: 048
  2. NEXIUM [Suspect]
     Indication: GASTROOESOPHAGEAL REFLUX DISEASE
     Route: 048
  3. SEROQUEL [Suspect]
     Indication: BIPOLAR DISORDER
     Route: 048
     Dates: start: 2000
  4. SEROQUEL [Suspect]
     Indication: OBSESSIVE-COMPULSIVE DISORDER
     Route: 048
     Dates: start: 2000
  5. SEROQUEL [Suspect]
     Indication: BIPOLAR DISORDER
     Dosage: 100 MG ONE TABLET IN MORNING AND TWO TABLETS AT NIGHT
     Route: 048
  6. SEROQUEL [Suspect]
     Indication: OBSESSIVE-COMPULSIVE DISORDER
     Dosage: 100 MG ONE TABLET IN MORNING AND TWO TABLETS AT NIGHT
     Route: 048
  7. TOPAMAX [Concomitant]
  8. TRAZADONE [Concomitant]
  9. XANAFEX [Concomitant]

REACTIONS (17)
  - Convulsion [Unknown]
  - Gastrooesophageal reflux disease [Unknown]
  - Pain [Unknown]
  - Cold sweat [Unknown]
  - Flatulence [Unknown]
  - Diarrhoea [Unknown]
  - Retching [Unknown]
  - Headache [Unknown]
  - Malaise [Unknown]
  - Restless legs syndrome [Unknown]
  - Dyspepsia [Unknown]
  - Abdominal discomfort [Unknown]
  - Hyperhidrosis [Unknown]
  - Asthenia [Unknown]
  - Intentional drug misuse [Unknown]
  - Intentional drug misuse [Unknown]
  - Drug dose omission [Unknown]
